FAERS Safety Report 7130459-0 (Version None)
Quarter: 2010Q4

REPORT INFORMATION
  Report Type: 
  Country: None (occurrence: None)
  Receive Date: 20101101
  Receipt Date: 20100723
  Transmission Date: 20110411
  Serious: No
  Sender: FDA-Public Use
  Company Number: 2010-10035

PATIENT
  Age: 77 Year
  Sex: Male

DRUGS (2)
  1. RAPAFLO [Suspect]
     Indication: PROSTATOMEGALY
     Dosage: 8 MG, DAILY, ORAL, 8 MG, DAILY, ORAL
     Route: 048
     Dates: start: 20100601, end: 20100718
  2. RAPAFLO [Suspect]
     Indication: PROSTATOMEGALY
     Dosage: 8 MG, DAILY, ORAL, 8 MG, DAILY, ORAL
     Route: 048
     Dates: start: 20100719

REACTIONS (4)
  - BLOOD PRESSURE INCREASED [None]
  - ERYTHEMA [None]
  - FEELING HOT [None]
  - FLUSHING [None]
